FAERS Safety Report 9902907 (Version 1)
Quarter: 2014Q1

REPORT INFORMATION
  Report Type: Spontaneous
  Country: IT (occurrence: IT)
  Receive Date: 20140217
  Receipt Date: 20140217
  Transmission Date: 20141002
  Serious: Yes (Other)
  Sender: FDA-Public Use
  Company Number: PHHY2014IT018937

PATIENT
  Sex: Male

DRUGS (7)
  1. CICLOSPORIN [Suspect]
     Indication: PROPHYLAXIS AGAINST GRAFT VERSUS HOST DISEASE
  2. ANTITHYMOCYTE IMMUNOGLOBULIN [Suspect]
     Indication: PROPHYLAXIS AGAINST GRAFT VERSUS HOST DISEASE
  3. METHOTREXATE [Suspect]
     Indication: PROPHYLAXIS AGAINST GRAFT VERSUS HOST DISEASE
  4. METHYLPREDNISOLONE [Suspect]
     Dosage: 2 MG/KG, UNK
  5. THIOTEPA [Concomitant]
  6. TREOSULFAN [Concomitant]
  7. FLUDARABINE [Concomitant]

REACTIONS (4)
  - Autoimmune haemolytic anaemia [Unknown]
  - Acute graft versus host disease [Unknown]
  - Epstein-Barr virus infection [Unknown]
  - Therapeutic response decreased [Unknown]
